FAERS Safety Report 11734643 (Version 4)
Quarter: 2017Q1

REPORT INFORMATION
  Report Type: Report from Study
  Country: US (occurrence: US)
  Receive Date: 20151113
  Receipt Date: 20170222
  Transmission Date: 20170428
  Serious: No
  Sender: FDA-Public Use
  Company Number: PHEH2015US023390

PATIENT
  Age: 55 Year
  Sex: Male
  Weight: 93.42 kg

DRUGS (5)
  1. SAW PALMETTO [Concomitant]
     Active Substance: SAW PALMETTO
     Indication: PRODUCT USED FOR UNKNOWN INDICATION
     Route: 065
  2. VITAMIN C [Concomitant]
     Active Substance: ASCORBIC ACID
     Indication: PRODUCT USED FOR UNKNOWN INDICATION
     Route: 065
  3. CLARITIN-D 12 HOUR [Concomitant]
     Active Substance: LORATADINE\PSEUDOEPHEDRINE SULFATE
     Indication: PRODUCT USED FOR UNKNOWN INDICATION
     Route: 065
  4. GILENYA [Suspect]
     Active Substance: FINGOLIMOD HYDROCHLORIDE
     Dosage: 0.5 MG, BID
     Route: 048
     Dates: start: 20160210
  5. GILENYA [Suspect]
     Active Substance: FINGOLIMOD HYDROCHLORIDE
     Indication: MULTIPLE SCLEROSIS
     Dosage: 0.5 MG, QD
     Route: 048
     Dates: start: 20141119

REACTIONS (9)
  - Gait disturbance [Unknown]
  - Headache [Unknown]
  - Concomitant disease aggravated [Unknown]
  - Vomiting [Unknown]
  - Extra dose administered [Unknown]
  - Amnesia [Unknown]
  - Malaise [Unknown]
  - Depression [Unknown]
  - Retching [Unknown]

NARRATIVE: CASE EVENT DATE: 20160210
